FAERS Safety Report 6233317-9 (Version None)
Quarter: 2009Q2

REPORT INFORMATION
  Report Type: 
  Country: None (occurrence: None)
  Receive Date: 20090615
  Receipt Date: 20090615
  Transmission Date: 20091009
  Serious: Yes (Hospitalization)
  Sender: FDA-Public Use
  Company Number: None

PATIENT
  Sex: Male
  Weight: 120.2 kg

DRUGS (2)
  1. TAXOTERE [Suspect]
     Dosage: 177 MG
     Dates: end: 20090414
  2. PREDNISONE TAB [Suspect]
     Dosage: 120 MG

REACTIONS (6)
  - HEPATIC FAILURE [None]
  - HEPATOCELLULAR INJURY [None]
  - HEPATOMEGALY [None]
  - METASTASES TO LIVER [None]
  - PROSTATIC SPECIFIC ANTIGEN INCREASED [None]
  - RENAL FAILURE [None]
